FAERS Safety Report 21300273 (Version 1)
Quarter: 2022Q3

REPORT INFORMATION
  Report Type: Spontaneous
  Country: BR (occurrence: BR)
  Receive Date: 20220906
  Receipt Date: 20220906
  Transmission Date: 20221027
  Serious: Yes (Other)
  Sender: FDA-Public Use
  Company Number: None

PATIENT
  Age: 87 Year
  Sex: Male
  Weight: 84 kg

DRUGS (3)
  1. ZERBAXA [Suspect]
     Active Substance: CEFTOLOZANE SULFATE\TAZOBACTAM SODIUM
     Dosage: 750 MILLIGRAM, Q8H
     Route: 042
     Dates: start: 202203
  2. TARGOCID [Suspect]
     Active Substance: TEICOPLANIN
     Indication: Pulmonary sepsis
     Dosage: 400 MILLIGRAM, Q12H (ALSO REPORTED AS BID)
     Route: 042
     Dates: start: 20220322, end: 20220323
  3. MEROPENEM [Concomitant]
     Active Substance: MEROPENEM
     Indication: Pulmonary sepsis
     Dosage: UNK
     Dates: start: 20220322, end: 20220323

REACTIONS (1)
  - Bicytopenia [Recovered/Resolved]

NARRATIVE: CASE EVENT DATE: 20220322
